FAERS Safety Report 18344820 (Version 2)
Quarter: 2020Q4

REPORT INFORMATION
  Report Type: Spontaneous
  Country: CO (occurrence: CO)
  Receive Date: 20201005
  Receipt Date: 20201103
  Transmission Date: 20210114
  Serious: Yes (Death, Other)
  Sender: FDA-Public Use
  Company Number: CO-PFIZER INC-2020380473

PATIENT
  Age: 51 Year
  Sex: Female

DRUGS (1)
  1. REAMPLA [Suspect]
     Active Substance: PALBOCICLIB
     Dosage: 125 MG
     Route: 048
     Dates: start: 202004

REACTIONS (15)
  - Abdominal discomfort [Unknown]
  - Cyanosis [Unknown]
  - Death [Fatal]
  - Hemiplegia [Recovered/Resolved]
  - Choking [Unknown]
  - Pulmonary oedema [Unknown]
  - Neoplasm progression [Unknown]
  - Swelling [Unknown]
  - Vomiting [Unknown]
  - Aphasia [Recovered/Resolved]
  - Abdominal distension [Unknown]
  - Constipation [Unknown]
  - Cor pulmonale acute [Unknown]
  - Loss of consciousness [Unknown]
  - Urinary retention [Unknown]

NARRATIVE: CASE EVENT DATE: 20200923
